FAERS Safety Report 25873160 (Version 1)
Quarter: 2025Q4

REPORT INFORMATION
  Report Type: Spontaneous
  Country: US (occurrence: None)
  Receive Date: 20251002
  Receipt Date: 20251002
  Transmission Date: 20260118
  Serious: No
  Sender: FDA-CTU
  Company Number: None

PATIENT
  Age: 74 Year
  Sex: Female
  Weight: 60.56 kg

DRUGS (2)
  1. CYTARABINE [Suspect]
     Active Substance: CYTARABINE
     Dates: end: 20250328
  2. PONATINIB [Suspect]
     Active Substance: PONATINIB
     Dates: end: 20250330

REACTIONS (1)
  - Disseminated intravascular coagulation [None]

NARRATIVE: CASE EVENT DATE: 20250330
